FAERS Safety Report 6141128-8 (Version None)
Quarter: 2009Q2

REPORT INFORMATION
  Report Type: 
  Country: None (occurrence: None)
  Receive Date: 20090402
  Receipt Date: 20090326
  Transmission Date: 20091009
  Serious: Yes (Hospitalization)
  Sender: FDA-Public Use
  Company Number: US-B.I. PHARMACEUTICALS,INC./RIDGEFIELD-2009-BP-01489BP

PATIENT
  Sex: Female

DRUGS (20)
  1. CATAPRES-TTS-1 [Suspect]
     Indication: HYPERTENSION
     Dosage: .3MG
     Route: 061
  2. AMLODIPINE BESYLATE [Concomitant]
  3. AGGRENOX [Concomitant]
  4. ASPIRIN [Concomitant]
  5. LASIX [Concomitant]
  6. DOXAZOSIN MESYLATE [Concomitant]
  7. HYDRALAZINE HCL [Concomitant]
  8. LISINOPRIL [Concomitant]
  9. CARVEDILOL [Concomitant]
  10. LABETALOL HCL [Concomitant]
  11. TRIAMTERENE [Concomitant]
  12. ABILIFY [Concomitant]
  13. LITHIUM CARBONATE [Concomitant]
  14. BUPROPION HCL [Concomitant]
  15. CLONAZEPAM [Concomitant]
  16. MIRTAZAPINE [Concomitant]
  17. SIMVASTATIN [Concomitant]
  18. DOC-Q-LACE [Concomitant]
  19. KLONOPIN [Concomitant]
  20. WELLBUTRIN [Concomitant]

REACTIONS (3)
  - CEREBROVASCULAR ACCIDENT [None]
  - HALLUCINATION, AUDITORY [None]
  - HALLUCINATION, VISUAL [None]
